FAERS Safety Report 6686290-3 (Version None)
Quarter: 2010Q2

REPORT INFORMATION
  Report Type: 
  Country: None (occurrence: None)
  Receive Date: 20100414
  Receipt Date: 20100330
  Transmission Date: 20101027
  Serious: Yes (Hospitalization)
  Sender: FDA-Public Use
  Company Number: 009666

PATIENT
  Sex: Male

DRUGS (4)
  1. CIMZIA [Suspect]
     Dosage: BEEN ON CIMZIA ABOUT A YEAR SUBCUTANEOUS
     Route: 058
     Dates: start: 20090101
  2. CIPRO /00697201/ [Concomitant]
  3. FLAGYL [Concomitant]
  4. PREDNISONE [Concomitant]

REACTIONS (4)
  - ENTEROVESICAL FISTULA [None]
  - GASTRIC FISTULA [None]
  - INTESTINAL OBSTRUCTION [None]
  - PNEUMONIA [None]
